FAERS Safety Report 6755830-8 (Version None)
Quarter: 2010Q2

REPORT INFORMATION
  Report Type: 
  Country: None (occurrence: None)
  Receive Date: 20100604
  Receipt Date: 20100526
  Transmission Date: 20101027
  Serious: Yes (Death)
  Sender: FDA-Public Use
  Company Number: US-JNJFOC-20100600550

PATIENT
  Age: 52 Year
  Sex: Female
  Weight: 70.31 kg

DRUGS (3)
  1. TYLENOL (CAPLET) [Suspect]
     Route: 048
  2. TYLENOL (CAPLET) [Suspect]
     Indication: BACK PAIN
     Dosage: 1-2 TABLETS, UNSPECIFIED
     Route: 048
  3. BENADRYL [Suspect]
     Indication: PRURITUS
     Dosage: 1-2 TABLESPOON, FREQUENCY UNSPECIFIED
     Route: 048

REACTIONS (2)
  - DEATH [None]
  - PRODUCT QUALITY ISSUE [None]
